FAERS Safety Report 5341141-4 (Version None)
Quarter: 2007Q2

REPORT INFORMATION
  Report Type: 
  Country: None (occurrence: None)
  Receive Date: 20070405
  Receipt Date: 20070104
  Transmission Date: 20071010
  Serious: No
  Sender: FDA-Public Use
  Company Number: US200701001576

PATIENT
  Sex: Female

DRUGS (1)
  1. CYMBALTA [Suspect]
     Indication: MAJOR DEPRESSION
     Dosage: 30 MG

REACTIONS (5)
  - ABNORMAL BEHAVIOUR [None]
  - BIPOLAR DISORDER [None]
  - MANIA [None]
  - PSYCHOMOTOR HYPERACTIVITY [None]
  - TREMOR [None]
